FAERS Safety Report 15557570 (Version 1)
Quarter: 2018Q4

REPORT INFORMATION
  Report Type: Report from Study
  Country: None (occurrence: BR)
  Receive Date: 20181027
  Receipt Date: 20181027
  Transmission Date: 20190205
  Serious: Yes (Hospitalization, Other)
  Sender: FDA-Public Use
  Company Number: BR-ABBVIE-18K-020-2527452-00

PATIENT
  Age: 51 Year
  Sex: Female
  Weight: 59 kg

DRUGS (11)
  1. MIORRELAX [Concomitant]
     Indication: MALAISE
  2. DIPYRONE [Concomitant]
     Active Substance: DIPYRONE
     Indication: MALAISE
  3. DORFLEX [Concomitant]
     Active Substance: CAFFEINE\DIPYRONE\ORPHENADRINE
     Indication: HEADACHE
  4. DORFLEX [Concomitant]
     Active Substance: CAFFEINE\DIPYRONE\ORPHENADRINE
     Indication: MALAISE
  5. TORSILAX [Concomitant]
     Active Substance: ACETAMINOPHEN\CAFFEINE\CARISOPRODOL\DICLOFENAC
     Indication: HEADACHE
  6. TORSILAX [Concomitant]
     Active Substance: ACETAMINOPHEN\CAFFEINE\CARISOPRODOL\DICLOFENAC
     Indication: MALAISE
  7. DIPYRONE [Concomitant]
     Active Substance: DIPYRONE
     Indication: HEADACHE
  8. CONDROFLEX [Concomitant]
     Active Substance: CHONDROITIN SULFATE (BOVINE)\GLUCOSAMINE SULFATE
     Indication: MALAISE
  9. HUMIRA [Suspect]
     Active Substance: ADALIMUMAB
     Route: 058
  10. HUMIRA [Suspect]
     Active Substance: ADALIMUMAB
     Route: 058
  11. HUMIRA [Suspect]
     Active Substance: ADALIMUMAB
     Indication: COLITIS ULCERATIVE
     Route: 058
     Dates: start: 20171001

REACTIONS (21)
  - Malaise [Recovered/Resolved]
  - Product administered at inappropriate site [Unknown]
  - Inappropriate schedule of product administration [Unknown]
  - Abdominal pain upper [Recovered/Resolved]
  - Dysstasia [Unknown]
  - Pain in extremity [Recovered/Resolved]
  - Drug effect delayed [Recovering/Resolving]
  - Nosocomial infection [Recovered/Resolved]
  - Unevaluable event [Recovered/Resolved]
  - Anxiety [Recovered/Resolved]
  - Asthenia [Unknown]
  - Injection site pain [Recovered/Resolved]
  - Malaise [Recovered/Resolved]
  - Wrong technique in product usage process [Unknown]
  - Abdominal pain upper [Recovered/Resolved]
  - Dizziness [Recovered/Resolved]
  - Fear [Recovered/Resolved]
  - Malaise [Recovered/Resolved]
  - Weight bearing difficulty [Recovered/Resolved]
  - Tension [Recovered/Resolved]
  - Gastroenteritis bacterial [Recovered/Resolved]

NARRATIVE: CASE EVENT DATE: 201710
